FAERS Safety Report 8174625 (Version 3)
Quarter: 2012Q4

REPORT INFORMATION
  Report Type: 
  Country: US (occurrence: US)
  Receive Date: 20111010
  Receipt Date: 20121011
  Transmission Date: 20130627
  Serious: Yes (Other)
  Sender: FDA-Public Use
  Company Number: PHEH2011US05499

PATIENT
  Age: 47 None
  Sex: Female
  Weight: 100 kg

DRUGS (28)
  1. GILENYA [Suspect]
     Indication: MULTIPLE SCLEROSIS
     Dosage: 0.5 mg, QD
     Route: 048
     Dates: start: 20101102, end: 20120605
  2. ASTELIN [Concomitant]
     Dosage: 137 ug, QD
     Dates: start: 2006
  3. EPIPEN [Concomitant]
     Indication: HYPERSENSITIVITY
     Dosage: UNK UKN, PRN
     Dates: start: 2009
  4. NASONEX [Concomitant]
     Indication: HYPERSENSITIVITY
     Dosage: UNK UKN, UNK
     Dates: start: 2006
  5. NEXIUM [Concomitant]
     Indication: EOSINOPHILIC OESOPHAGITIS
     Dosage: 40 mg, QD
     Dates: start: 201106
  6. VITAMIN D3 [Concomitant]
     Indication: VITAMIN D DEFICIENCY
     Dosage: 2000 U, QD
     Dates: start: 201001
  7. CHERATUSSIN AC [Concomitant]
     Dosage: 2 mg/ml, PRN
     Route: 048
     Dates: start: 20101119
  8. DIAZEPAM [Concomitant]
     Dosage: 5 mg, UNK
     Route: 048
     Dates: start: 20110829
  9. DOXYCYCLINE HYCLATE [Concomitant]
     Dosage: 100 mg, BID
     Route: 048
     Dates: start: 20110804
  10. FLOVENT [Concomitant]
     Dosage: 2 DF, BID
  11. HYDROMORPHONE HYDROCHLORIDE [Concomitant]
     Dosage: 1 DF, PRN
     Route: 048
     Dates: start: 20110824
  12. ACETAMINOPHEN W/HYDROCODONE [Concomitant]
     Dosage: UNK UKN, UNK
     Route: 048
     Dates: start: 20110829
  13. LORAZEPAM [Concomitant]
     Dosage: 0.5 mg, UNK
     Route: 048
     Dates: start: 20111004
  14. NAFTIN [Concomitant]
     Dates: start: 20101109
  15. ACETAMINOPHEN W/OXYCODONE [Concomitant]
     Dosage: UNK UKN, PRN
     Route: 048
     Dates: start: 20110804
  16. PROAIR HFA [Concomitant]
     Dosage: 108 ug, UNK
     Dates: start: 20101119
  17. SINGULAIR [Concomitant]
     Dosage: 10 mg, UNK
     Route: 048
     Dates: start: 20110701
  18. SULFAMETHOXAZOLE W/TRIMETHOPRIM [Concomitant]
     Dosage: UNK UKN, UNK
     Route: 048
     Dates: start: 20110717
  19. VESICARE [Concomitant]
     Dosage: 10 mg, QD
     Dates: start: 20060412, end: 20110614
  20. TAMOXIFEN [Concomitant]
  21. ANASTROZOLE [Concomitant]
     Dosage: 1 mg, daily
  22. ATIVAN [Concomitant]
     Dosage: 0.5 mg, PRN
  23. LIPITOR [Concomitant]
     Dosage: 20 mg, QD
  24. ZOLPIDEM [Concomitant]
     Dosage: UNK UKN, PRN
  25. CALCIUM WITH VITAMIN D [Concomitant]
     Dosage: UNK UKN, BID
  26. FISH OIL [Concomitant]
     Dosage: 1000 mg, QD
  27. MULTIVITAMIN [Concomitant]
     Dosage: UNK UKN, QD
  28. VITAMIN D [Concomitant]
     Dosage: 2000 U, QD

REACTIONS (2)
  - Breast cancer stage I [Recovering/Resolving]
  - Breast cyst [Recovering/Resolving]
